FAERS Safety Report 5801105-0 (Version None)
Quarter: 2008Q3

REPORT INFORMATION
  Report Type: 
  Country: None (occurrence: None)
  Receive Date: 20080707
  Receipt Date: 20080703
  Transmission Date: 20090109
  Serious: Yes (Other)
  Sender: FDA-Public Use
  Company Number: US-BRISTOL-MYERS SQUIBB COMPANY-14249627

PATIENT

DRUGS (1)
  1. COUMADIN [Suspect]
     Route: 048

REACTIONS (4)
  - HYPHAEMA [None]
  - IRIS HAEMORRHAGE [None]
  - PLATELET FUNCTION TEST ABNORMAL [None]
  - RETINAL HAEMORRHAGE [None]
